FAERS Safety Report 11789405 (Version 1)
Quarter: 2015Q4

REPORT INFORMATION
  Report Type: Spontaneous
  Country: GB (occurrence: GB)
  Receive Date: 20151201
  Receipt Date: 20151201
  Transmission Date: 20160305
  Serious: Yes (Hospitalization)
  Sender: FDA-Public Use
  Company Number: GB-TEVA-610595ACC

PATIENT
  Age: 58 Year
  Sex: Female

DRUGS (12)
  1. TEMAZEPAM. [Concomitant]
     Active Substance: TEMAZEPAM
  2. MORPHINE SULFATE. [Suspect]
     Active Substance: MORPHINE SULFATE
     Indication: OSTEOPOROSIS
     Dosage: PRESCRIBED DOSE: 10MG (5ML) EVERY FOUR HOURS AS NECESSARY
     Route: 048
  3. FLUTICASONE PROPIONATE. [Concomitant]
     Active Substance: FLUTICASONE PROPIONATE
  4. COCODAMOL [Concomitant]
     Active Substance: ACETAMINOPHEN\CODEINE PHOSPHATE
  5. GABAPENTIN. [Concomitant]
     Active Substance: GABAPENTIN
  6. IBUPROFEN. [Concomitant]
     Active Substance: IBUPROFEN
  7. OMEPRAZOLE. [Concomitant]
     Active Substance: OMEPRAZOLE
  8. SALBUTAMOL [Concomitant]
     Active Substance: ALBUTEROL
  9. SERTRALINE [Concomitant]
     Active Substance: SERTRALINE HYDROCHLORIDE
  10. VISCOTEARS [Concomitant]
     Active Substance: CARBOMER
  11. DIAZEPAM. [Concomitant]
     Active Substance: DIAZEPAM
  12. FORMOTEROL [Concomitant]
     Active Substance: FORMOTEROL

REACTIONS (9)
  - Hepatic function abnormal [Recovering/Resolving]
  - Accidental overdose [Not Recovered/Not Resolved]
  - Toxicity to various agents [Recovering/Resolving]
  - Acute kidney injury [Recovered/Resolved]
  - Rhabdomyolysis [Unknown]
  - Troponin increased [Unknown]
  - Miosis [Unknown]
  - Hypotension [Unknown]
  - Somnolence [Unknown]

NARRATIVE: CASE EVENT DATE: 20151103
